FAERS Safety Report 10956920 (Version 1)
Quarter: 2015Q1

REPORT INFORMATION
  Report Type: Spontaneous
  Country: US (occurrence: US)
  Receive Date: 20150326
  Receipt Date: 20150326
  Transmission Date: 20150721
  Serious: Yes (Hospitalization, Other)
  Sender: FDA-Public Use
  Company Number: US-UNITED THERAPEUTICS-UNT-2015-002932

PATIENT
  Sex: Male
  Weight: 89.21 kg

DRUGS (1)
  1. REMODULIN [Suspect]
     Active Substance: TREPROSTINIL
     Indication: PULMONARY ARTERIAL HYPERTENSION
     Dosage: 0.079 ?G/KG/MIN, CONTINUING
     Route: 041
     Dates: start: 20140825

REACTIONS (6)
  - Colitis [Unknown]
  - Abdominal hernia repair [Unknown]
  - Intestinal obstruction [Unknown]
  - Abdominal pain [Recovered/Resolved]
  - Decreased appetite [Recovered/Resolved]
  - Diarrhoea [Recovered/Resolved]
